FAERS Safety Report 5620326-3 (Version None)
Quarter: 2008Q1

REPORT INFORMATION
  Report Type: 
  Country: None (occurrence: None)
  Receive Date: 20080208
  Receipt Date: 20080130
  Transmission Date: 20080703
  Serious: Yes (Hospitalization)
  Sender: FDA-Public Use
  Company Number: US-ELI_LILLY_AND_COMPANY-US200801001859

PATIENT
  Sex: Female
  Weight: 136.5 kg

DRUGS (4)
  1. GEMZAR [Suspect]
     Indication: BLADDER CANCER
     Dosage: 1000 MG/M2, 2500 MG, UNK
     Dates: start: 20071010, end: 20071212
  2. CISPLATIN [Concomitant]
     Indication: BLADDER CANCER
     Dates: start: 20070901, end: 20070101
  3. CIPRO /00697201/ [Concomitant]
     Indication: PROPHYLAXIS
     Dosage: 500 MG, DAILY (1/D)
  4. LISINOPRIL [Concomitant]
     Indication: BLOOD PRESSURE
     Dates: end: 20080110

REACTIONS (8)
  - ALOPECIA [None]
  - BLOOD COUNT ABNORMAL [None]
  - CYSTITIS [None]
  - DEHYDRATION [None]
  - FATIGUE [None]
  - HEADACHE [None]
  - NAUSEA [None]
  - RETCHING [None]
